FAERS Safety Report 8164183-2 (Version None)
Quarter: 2012Q1

REPORT INFORMATION
  Report Type: 
  Country: None (occurrence: None)
  Receive Date: 20120224
  Receipt Date: 20120220
  Transmission Date: 20120608
  Serious: Yes (Hospitalization, Other)
  Sender: FDA-Public Use
  Company Number: JP-CELGENEUS-087-21880-11091881

PATIENT
  Sex: Male

DRUGS (16)
  1. DEXAMETHASONE ACETATE [Suspect]
     Indication: MULTIPLE MYELOMA
     Dosage: 40 MILLIGRAM
     Route: 048
     Dates: start: 20101203, end: 20101231
  2. DEXAMETHASONE ACETATE [Suspect]
     Indication: REFRACTORY CANCER
     Dosage: 40 MILLIGRAM
     Route: 048
     Dates: start: 20110107, end: 20110128
  3. DECADRON [Concomitant]
     Indication: REFRACTORY CANCER
     Dosage: 40 MILLIGRAM
     Route: 048
     Dates: start: 20101105, end: 20101119
  4. REVLIMID [Suspect]
     Indication: REFRACTORY CANCER
     Dosage: 10 MILLIGRAM
     Route: 048
     Dates: start: 20101105, end: 20101125
  5. REVLIMID [Suspect]
     Dosage: 10 MILLIGRAM
     Route: 048
     Dates: start: 20101203, end: 20101223
  6. REVLIMID [Suspect]
     Dosage: 20 MILLIGRAM
     Route: 048
     Dates: start: 20110304, end: 20110324
  7. DEXAMETHASONE ACETATE [Suspect]
     Dosage: 40 MILLIGRAM
     Route: 048
     Dates: start: 20110304, end: 20110318
  8. DAIPHEN [Concomitant]
     Indication: PROPHYLAXIS
     Dosage: 4 TABLET
     Route: 048
     Dates: start: 20101002
  9. AMLODIPINE BESYLATE [Concomitant]
     Indication: HYPERTENSION
     Dosage: 5 MILLIGRAM
     Route: 048
     Dates: start: 20101001
  10. REVLIMID [Suspect]
     Dosage: 15 MILLIGRAM
     Route: 048
     Dates: start: 20110107, end: 20110127
  11. DEXAMETHASONE ACETATE [Suspect]
     Dosage: 40 MILLIGRAM
     Route: 048
     Dates: start: 20110204, end: 20110225
  12. REVLIMID [Suspect]
     Indication: MULTIPLE MYELOMA
     Dosage: 5 MILLIGRAM
     Route: 048
     Dates: start: 20101001, end: 20101021
  13. REVLIMID [Suspect]
     Dosage: 20 MILLIGRAM
     Route: 048
     Dates: start: 20100204, end: 20110224
  14. DECADRON [Concomitant]
     Indication: MULTIPLE MYELOMA
     Dosage: 40 MILLIGRAM
     Route: 048
     Dates: start: 20101001, end: 20101023
  15. OMEPRAZOLE [Concomitant]
     Indication: PROPHYLAXIS
     Dosage: 20 MILLIGRAM
     Route: 048
     Dates: start: 20101001
  16. CANDESARTAN CILEXETIL [Concomitant]
     Indication: HYPERTENSION
     Dosage: 4 MILLIGRAM
     Route: 048
     Dates: start: 20101001

REACTIONS (4)
  - CONSTIPATION [None]
  - SUBILEUS [None]
  - LARGE INTESTINE CARCINOMA [None]
  - DIARRHOEA [None]
